FAERS Safety Report 12819763 (Version 1)
Quarter: 2016Q4

REPORT INFORMATION
  Report Type: Spontaneous
  Country: US (occurrence: US)
  Receive Date: 20161006
  Receipt Date: 20161006
  Transmission Date: 20170207
  Serious: Yes (Other)
  Sender: FDA-Public Use
  Company Number: None

PATIENT
  Age: 61 Year
  Sex: Female
  Weight: 63.5 kg

DRUGS (12)
  1. ARMOUR THYROID [Concomitant]
     Active Substance: THYROID, PORCINE
  2. TOLTERODINE [Concomitant]
     Active Substance: TOLTERODINE
  3. TRAZODONE [Concomitant]
     Active Substance: TRAZODONE HYDROCHLORIDE
  4. KRILL OIL [Concomitant]
     Active Substance: DIETARY SUPPLEMENT
  5. FLUOXETINE [Concomitant]
     Active Substance: FLUOXETINE HYDROCHLORIDE
  6. BUPROPION. [Concomitant]
     Active Substance: BUPROPION
  7. CA +2 + VIT D [Concomitant]
  8. ZYRTEC [Concomitant]
     Active Substance: CETIRIZINE HYDROCHLORIDE
  9. ESTRADIOL. [Concomitant]
     Active Substance: ESTRADIOL
  10. MORINGO HERB OL. FERA [Concomitant]
  11. VESICARE [Suspect]
     Active Substance: SOLIFENACIN SUCCINATE
     Indication: MICTURITION URGENCY
     Dosage: ?          QUANTITY:1 TABLET(S);?
     Route: 048
     Dates: start: 20160804, end: 20160821
  12. VESICARE [Suspect]
     Active Substance: SOLIFENACIN SUCCINATE
     Indication: INCONTINENCE
     Dosage: ?          QUANTITY:1 TABLET(S);?
     Route: 048
     Dates: start: 20160804, end: 20160821

REACTIONS (9)
  - Lip swelling [None]
  - Hypersensitivity [None]
  - Pruritus [None]
  - Cheilitis [None]
  - Lip exfoliation [None]
  - Lip haemorrhage [None]
  - Paraesthesia oral [None]
  - Therapy change [None]
  - Chapped lips [None]

NARRATIVE: CASE EVENT DATE: 20160818
